FAERS Safety Report 7534861-4 (Version None)
Quarter: 2011Q2

REPORT INFORMATION
  Report Type: 
  Country: None (occurrence: None)
  Receive Date: 20110609
  Receipt Date: 20110601
  Transmission Date: 20111010
  Serious: Yes (Hospitalization)
  Sender: FDA-Public Use
  Company Number: US-BIOGENIDEC-2011BI014437

PATIENT
  Sex: Female

DRUGS (5)
  1. PLAVIX [Concomitant]
     Indication: CARDIAC DISORDER
  2. TYSABRI [Suspect]
     Indication: MULTIPLE SCLEROSIS
     Route: 042
     Dates: start: 20080709
  3. TOPROL-XL [Concomitant]
     Indication: HYPERTENSION
  4. NITROQUICK, PRN [Concomitant]
     Indication: CARDIAC DISORDER
  5. ASPIRIN [Concomitant]
     Indication: CARDIAC DISORDER

REACTIONS (5)
  - PELVIC PROLAPSE [None]
  - NEUROGENIC BLADDER [None]
  - CYSTITIS [None]
  - STRESS URINARY INCONTINENCE [None]
  - NEUROGENIC BOWEL [None]
